FAERS Safety Report 9695232 (Version 1)
Quarter: 2013Q4

REPORT INFORMATION
  Report Type: Spontaneous
  Country: AU (occurrence: AU)
  Receive Date: 20131119
  Receipt Date: 20131119
  Transmission Date: 20140711
  Serious: Yes (Other)
  Sender: FDA-Public Use
  Company Number: AU-ABBVIE-13P-008-1158283-00

PATIENT
  Sex: Male

DRUGS (6)
  1. SODIUM VALPROATE [Suspect]
     Indication: PRODUCT USED FOR UNKNOWN INDICATION
  2. LAMIVUDINE [Suspect]
     Indication: PRODUCT USED FOR UNKNOWN INDICATION
  3. MEXILETINE HYDROCHLORIDE [Suspect]
     Indication: PRODUCT USED FOR UNKNOWN INDICATION
  4. SAQUINAVIR MESYLATE [Suspect]
     Indication: PRODUCT USED FOR UNKNOWN INDICATION
  5. STAVUDINE [Suspect]
     Indication: PRODUCT USED FOR UNKNOWN INDICATION
  6. INDOCID [Suspect]
     Indication: PRODUCT USED FOR UNKNOWN INDICATION

REACTIONS (3)
  - Lactic acidosis [Unknown]
  - Pancreatitis [Unknown]
  - Hyperkalaemia [Unknown]
